FAERS Safety Report 9318865 (Version 1)
Quarter: 2013Q2

REPORT INFORMATION
  Report Type: Spontaneous
  Country: BR (occurrence: BR)
  Receive Date: 20130530
  Receipt Date: 20130530
  Transmission Date: 20140414
  Serious: Yes (Hospitalization, Other)
  Sender: FDA-Public Use
  Company Number: BR-SANOFI-AVENTIS-2013SA053247

PATIENT
  Age: 38 Year
  Sex: Female

DRUGS (1)
  1. CLEXANE [Suspect]
     Indication: THROMBOSIS
     Route: 065
     Dates: start: 201303

REACTIONS (3)
  - Premature separation of placenta [Recovered/Resolved]
  - Exposure during pregnancy [Recovered/Resolved]
  - Haemorrhage [Recovered/Resolved]
